FAERS Safety Report 11811349 (Version 1)
Quarter: 2015Q4

REPORT INFORMATION
  Report Type: Report from Study
  Country: CH (occurrence: CH)
  Receive Date: 20151208
  Receipt Date: 20151208
  Transmission Date: 20160305
  Serious: Yes (Hospitalization)
  Sender: FDA-Public Use
  Company Number: CH-BAXALTA-2015BLT003045

PATIENT
  Age: 55 Year
  Sex: Male

DRUGS (9)
  1. ADVATE [Suspect]
     Active Substance: ANTIHEMOPHILIC FACTOR, HUMAN RECOMBINANT
     Indication: FACTOR VIII DEFICIENCY
     Dosage: 1000 IU, 2X A DAY
     Route: 042
     Dates: start: 20151124, end: 20151124
  2. TRAMAL [Concomitant]
     Active Substance: TRAMADOL
     Indication: PAIN
  3. ADVATE [Suspect]
     Active Substance: ANTIHEMOPHILIC FACTOR, HUMAN RECOMBINANT
     Indication: PROPHYLAXIS
     Dosage: 1000 IU, UNK
     Route: 042
     Dates: start: 20151122, end: 20151122
  4. ADVATE [Suspect]
     Active Substance: ANTIHEMOPHILIC FACTOR, HUMAN RECOMBINANT
     Dosage: 2000 IU, 1X A DAY
     Route: 042
     Dates: start: 20151125, end: 20151126
  5. TRAMAL [Concomitant]
     Active Substance: TRAMADOL
     Indication: ARTHRALGIA
     Dosage: 20 GTT, AS NEEDED
     Route: 048
     Dates: start: 20151120
  6. CELEBREX [Concomitant]
     Active Substance: CELECOXIB
     Indication: OSTEOARTHRITIS
     Dosage: 1 TABLET, AS NEEDED
     Route: 048
     Dates: start: 201504
  7. TRAMAL [Concomitant]
     Active Substance: TRAMADOL
     Indication: OSTEOARTHRITIS
     Dosage: DROPS, AS NEEDED
     Route: 048
     Dates: start: 2013, end: 20151119
  8. DAFALGAN [Concomitant]
     Active Substance: ACETAMINOPHEN
     Indication: OSTEOARTHRITIS
     Dosage: 1 TABLET, AS NEEDED
     Route: 048
     Dates: start: 2013
  9. DAFALGAN [Concomitant]
     Active Substance: ACETAMINOPHEN
     Indication: ARTHRALGIA

REACTIONS (1)
  - Nephrolithiasis [Not Recovered/Not Resolved]

NARRATIVE: CASE EVENT DATE: 20151123
